FAERS Safety Report 7479291-9 (Version None)
Quarter: 2011Q2

REPORT INFORMATION
  Report Type: 
  Country: None (occurrence: None)
  Receive Date: 20110513
  Receipt Date: 20110512
  Transmission Date: 20111010
  Serious: Yes (Life-Threatening, Hospitalization, Other)
  Sender: FDA-Public Use
  Company Number: FI-PFIZER INC-2011101668

PATIENT
  Age: 69 Year
  Sex: Male

DRUGS (5)
  1. LIPITOR [Suspect]
     Indication: HYPERCHOLESTEROLAEMIA
     Dosage: 20 MG, 1X/DAY
     Route: 048
     Dates: start: 20040101, end: 20100101
  2. PRIMASPAN [Concomitant]
     Indication: CORONARY ARTERY DISEASE
     Dosage: 100 MG, 1X/DAY
     Route: 048
     Dates: start: 20030326
  3. LIPITOR [Suspect]
     Dosage: 10 MG, 1X/DAY
     Route: 048
     Dates: start: 20100101
  4. LIPITOR [Suspect]
     Indication: MYOCARDIAL INFARCTION
     Dosage: 40 MG, 1X/DAY
     Route: 048
     Dates: start: 20030326, end: 20040101
  5. SPESICOR DOS [Concomitant]
     Indication: CORONARY ARTERY DISEASE
     Dosage: 47.5 MG, 1X/DAY
     Route: 048
     Dates: start: 20030326

REACTIONS (4)
  - ABDOMINAL PAIN UPPER [None]
  - RESPIRATORY FAILURE [None]
  - PNEUMONIA [None]
  - PANCREATITIS [None]
